FAERS Safety Report 11427362 (Version 1)
Quarter: 2015Q3

REPORT INFORMATION
  Report Type: Spontaneous
  Country: US (occurrence: US)
  Receive Date: 20150827
  Receipt Date: 20150827
  Transmission Date: 20151125
  Serious: No
  Sender: FDA-Public Use
  Company Number: US-SA-2015SA074580

PATIENT
  Sex: Female

DRUGS (2)
  1. PITOCIN [Concomitant]
     Active Substance: OXYTOCIN
     Indication: UTERINE CONTRACTIONS DURING PREGNANCY
     Dates: start: 20130921, end: 20130921
  2. FABRAZYME [Suspect]
     Active Substance: AGALSIDASE BETA
     Indication: FABRY^S DISEASE
     Dosage: EVERY 4 WEEKS
     Route: 041
     Dates: start: 20110303, end: 20110623

REACTIONS (1)
  - Maternal exposure before pregnancy [Unknown]
